FAERS Safety Report 8846362 (Version 2)
Quarter: 2012Q4

REPORT INFORMATION
  Report Type: 
  Country: US (occurrence: US)
  Receive Date: 20121018
  Receipt Date: 20121122
  Transmission Date: 20130627
  Serious: No
  Sender: FDA-Public Use
  Company Number: US-BIOGENIDEC-2012BI044080

PATIENT
  Age: 59 None
  Sex: Female

DRUGS (1)
  1. TYSABRI [Suspect]
     Indication: MULTIPLE SCLEROSIS
     Route: 042
     Dates: start: 20120116, end: 20120827

REACTIONS (7)
  - Band sensation [Recovered/Resolved]
  - Central nervous system lesion [Unknown]
  - Congenital cerebrovascular anomaly [Unknown]
  - Dissociation [Recovered/Resolved]
  - Drug ineffective [Unknown]
  - Multiple sclerosis relapse [Unknown]
  - Drug specific antibody present [Unknown]
